FAERS Safety Report 14640089 (Version 1)
Quarter: 2018Q1

REPORT INFORMATION
  Report Type: Spontaneous
  Country: US (occurrence: US)
  Receive Date: 20180314
  Receipt Date: 20180314
  Transmission Date: 20180509
  Serious: Yes (Other)
  Sender: FDA-Public Use
  Company Number: None

PATIENT
  Age: 60 Year
  Sex: Female
  Weight: 69.9 kg

DRUGS (1)
  1. VANCOMYCIN 1 GRAM [Suspect]
     Active Substance: VANCOMYCIN
     Route: 042
     Dates: start: 20180109

REACTIONS (2)
  - Irritability [None]
  - Erythema [None]

NARRATIVE: CASE EVENT DATE: 20180109
